FAERS Safety Report 7984755-5 (Version None)
Quarter: 2011Q4

REPORT INFORMATION
  Report Type: 
  Country: None (occurrence: None)
  Receive Date: 20111216
  Receipt Date: 20111207
  Transmission Date: 20120403
  Serious: Yes (Hospitalization, Other)
  Sender: FDA-Public Use
  Company Number: US-AMGEN-USASP2011057273

PATIENT
  Age: 69 Year
  Sex: Female
  Weight: 56.236 kg

DRUGS (18)
  1. MORPHINE [Concomitant]
     Dosage: 15 MG/ML, BID
  2. LOVASTATIN [Concomitant]
     Dosage: 40 MG, QD
  3. SPIRIVA [Concomitant]
     Dosage: UNK, QD
  4. VICODIN [Concomitant]
     Dosage: 7.5 MG/750, TID
  5. ASPIRIN [Concomitant]
     Dosage: 81 MG, QD
     Route: 048
  6. ESTROPIPATE [Concomitant]
     Dosage: 0.75 MG, QD
  7. GLUCOSAMINE                        /00943603/ [Concomitant]
     Dosage: 1500 MG, QD
     Route: 048
  8. PRILOSEC                           /00661203/ [Concomitant]
     Dosage: 20 MG 1 TABLET BY MOUTH TWICE
     Route: 048
  9. PLAQUENIL [Concomitant]
     Indication: RHEUMATOID ARTHRITIS
     Dosage: 200 MG, ONE TABLET TWICE A DAY
     Route: 048
  10. ADVAIR DISKUS 100/50 [Concomitant]
     Dosage: 250/50MG BID
  11. FOLIC ACID [Concomitant]
     Dosage: 800 MCG QD
     Route: 048
  12. PROZAC [Concomitant]
     Dosage: 20 MG, QD
  13. BENICAR [Concomitant]
     Dosage: 20 MG, QD
     Route: 048
  14. CALCIUM [Concomitant]
     Dosage: 600 MG, BID
  15. NEURONTIN [Concomitant]
     Dosage: 400 MG ADMINISTER 2 TID
  16. RECLAST [Concomitant]
     Dosage: 5 MG/100 ML INFUSE ONCE YEARLY
  17. ENBREL [Suspect]
     Indication: RHEUMATOID ARTHRITIS
     Dosage: 25 MG, Q3WK
     Dates: start: 20021101
  18. PILOCARPINE [Concomitant]
     Dosage: 5 MG, BID

REACTIONS (6)
  - PARAESTHESIA [None]
  - JOINT ARTHROPLASTY [None]
  - OPEN REDUCTION OF FRACTURE [None]
  - INJECTION SITE PAIN [None]
  - DRUG INEFFECTIVE [None]
  - VASCULAR GRAFT [None]
